FAERS Safety Report 6209942-8 (Version None)
Quarter: 2009Q2

REPORT INFORMATION
  Report Type: 
  Country: None (occurrence: None)
  Receive Date: 20090527
  Receipt Date: 20090518
  Transmission Date: 20091009
  Serious: Yes (Death, Hospitalization)
  Sender: FDA-Public Use
  Company Number: CERZ-1000536

PATIENT
  Age: 59 Year
  Sex: Female
  Weight: 45 kg

DRUGS (10)
  1. CEREZYME [Suspect]
     Indication: GAUCHER'S DISEASE
     Dosage: 15 U/KG, Q2W, INTRAVENOUS
     Route: 042
     Dates: start: 19990101, end: 20090128
  2. OMEPRAZOLE [Concomitant]
  3. RISPERIDONE [Concomitant]
  4. CIAMEMAZINE [Concomitant]
  5. DELTIENE [Concomitant]
  6. LOSARTAN POTASSIUM W (HYDROCHLOROTHIAZIDE, LOSARTAN POTASSIUM) [Concomitant]
  7. PLAZAPINA [Concomitant]
  8. ZYPREXA [Concomitant]
  9. ACETILCISTEINA (ACETYLCYSTEINE) [Concomitant]
  10. FLUTICASONE W (FLUTICASONE, SALMETEROL) [Concomitant]

REACTIONS (2)
  - CHRONIC OBSTRUCTIVE PULMONARY DISEASE [None]
  - PNEUMONIA [None]
